FAERS Safety Report 7362632-0 (Version None)
Quarter: 2011Q1

REPORT INFORMATION
  Report Type: 
  Country: None (occurrence: None)
  Receive Date: 20110320
  Receipt Date: 20110307
  Transmission Date: 20110831
  Serious: Yes (Other)
  Sender: FDA-Public Use
  Company Number: US-BAYER-201023792NA

PATIENT
  Sex: Female

DRUGS (13)
  1. UNCODEABLE ^UNCLASSIFIABLE^ [Concomitant]
  2. BENADRYL [Concomitant]
  3. IPRATROPIUM BROMIDE [Concomitant]
  4. PREDNISONE [Concomitant]
  5. PERCOCET [Concomitant]
  6. IRON [Concomitant]
  7. YASMIN [Suspect]
     Indication: PRODUCT USED FOR UNKNOWN INDICATION
  8. OCELLA [Suspect]
     Indication: PRODUCT USED FOR UNKNOWN INDICATION
  9. ATROVENT [Concomitant]
  10. XOPENEX [Concomitant]
  11. YAZ [Suspect]
     Indication: UNEVALUABLE EVENT
  12. SINGULAIR [Concomitant]
  13. EPIPEN [Concomitant]

REACTIONS (3)
  - DEEP VEIN THROMBOSIS [None]
  - PULMONARY EMBOLISM [None]
  - INJURY [None]
